FAERS Safety Report 8840067 (Version 1)
Quarter: 2012Q4

REPORT INFORMATION
  Report Type: 
  Country: US (occurrence: US)
  Receive Date: 20121015
  Receipt Date: 20121015
  Transmission Date: 20130627
  Serious: No
  Sender: FDA-Public Use
  Company Number: US-PFIZER INC-2012250945

PATIENT
  Weight: 181.41 kg

DRUGS (1)
  1. DETROL LA [Suspect]
     Dosage: 4 mg, 1x/day

REACTIONS (1)
  - Drug ineffective [Unknown]
